FAERS Safety Report 22098353 (Version 1)
Quarter: 2023Q1

REPORT INFORMATION
  Report Type: Spontaneous
  Country: US (occurrence: None)
  Receive Date: 20230314
  Receipt Date: 20230314
  Transmission Date: 20230418
  Serious: Yes (Hospitalization, Other)
  Sender: FDA-Public Use
  Company Number: None

PATIENT
  Age: 38 Year
  Sex: Male

DRUGS (3)
  1. FLUOXETINE [Suspect]
     Active Substance: FLUOXETINE HYDROCHLORIDE
     Indication: Bipolar disorder
     Route: 065
  2. N-METHYLCYCLAZODONE [Suspect]
     Active Substance: N-METHYLCYCLAZODONE
     Route: 065
  3. ARIPIPRAZOLE [Suspect]
     Active Substance: ARIPIPRAZOLE

REACTIONS (17)
  - Drug interaction [None]
  - Restlessness [None]
  - Tremor [None]
  - Heart rate increased [None]
  - Blood pressure increased [None]
  - Respiratory rate increased [None]
  - Mydriasis [None]
  - Sinus tachycardia [None]
  - Electrocardiogram QRS complex prolonged [None]
  - Electrocardiogram QT prolonged [None]
  - Alanine aminotransferase increased [None]
  - Rhabdomyolysis [None]
  - Toxicity to various agents [None]
  - Attention deficit hyperactivity disorder [None]
  - Blood creatine phosphokinase increased [None]
  - Choreoathetosis [None]
  - Blood creatine phosphokinase increased [None]
